FAERS Safety Report 6962698-3 (Version None)
Quarter: 2010Q3

REPORT INFORMATION
  Report Type: 
  Country: None (occurrence: None)
  Receive Date: 20100902
  Receipt Date: 20100823
  Transmission Date: 20110219
  Serious: Yes (Other)
  Sender: FDA-Public Use
  Company Number: DE-PFIZER INC-2010105849

PATIENT
  Age: 57 Year
  Sex: Female

DRUGS (1)
  1. LONOLOX [Suspect]
     Indication: HYPERTENSION
     Dosage: 2.5 MG, 3X/DAY
     Route: 048
     Dates: start: 20100401

REACTIONS (1)
  - DYSPNOEA [None]
